FAERS Safety Report 9031574 (Version 2)
Quarter: 2013Q1

REPORT INFORMATION
  Report Type: Spontaneous
  Country: FR (occurrence: FR)
  Receive Date: 20130124
  Receipt Date: 20130211
  Transmission Date: 20140127
  Serious: Yes (Other)
  Sender: FDA-Public Use
  Company Number: FR-009507513-1301FRA008321

PATIENT
  Age: 0 Year
  Sex: Male
  Weight: 9 kg

DRUGS (3)
  1. CELESTENE [Suspect]
     Indication: BRONCHIOLITIS
     Dosage: 90 GTT, TID
     Route: 048
     Dates: start: 20121217, end: 20121219
  2. VENTOLINE (ALBUTEROL) [Concomitant]
     Indication: BRONCHIOLITIS
     Dosage: 1 DF, TID
     Route: 055
  3. BECOTIDE [Concomitant]
     Indication: BRONCHIOLITIS
     Dosage: 1 DF, TID
     Route: 055

REACTIONS (1)
  - Accidental overdose [Recovered/Resolved]
